FAERS Safety Report 14610214 (Version 1)
Quarter: 2018Q1

REPORT INFORMATION
  Report Type: Spontaneous
  Country: IN (occurrence: IN)
  Receive Date: 20180307
  Receipt Date: 20180307
  Transmission Date: 20180509
  Serious: Yes (Hospitalization, Other)
  Sender: FDA-Public Use
  Company Number: IN-ELI_LILLY_AND_COMPANY-IN201803000199

PATIENT
  Age: 18 Year
  Sex: Female

DRUGS (1)
  1. OLANZAPINE. [Suspect]
     Active Substance: OLANZAPINE
     Indication: PRODUCT USED FOR UNKNOWN INDICATION
     Dosage: UNK UNK, UNKNOWN
     Route: 048

REACTIONS (9)
  - Tachycardia [Recovered/Resolved]
  - Extensor plantar response [Recovered/Resolved]
  - Miosis [Recovered/Resolved]
  - Hypertonia [Recovered/Resolved]
  - Overdose [Recovered/Resolved]
  - Mental status changes [Recovered/Resolved]
  - Prescription drug used without a prescription [Unknown]
  - Hypotension [Recovered/Resolved]
  - Reflexes abnormal [Recovered/Resolved]
